FAERS Safety Report 8020622 (Version 13)
Quarter: 2013Q3

REPORT INFORMATION
  Report Type: Report from Study
  Country: JP (occurrence: JP)
  Receive Date: 20110627
  Receipt Date: 20130917
  Transmission Date: 20140515
  Serious: Yes (Hospitalization)
  Sender: FDA-Public Use
  Company Number: PHHO2011JP10348

PATIENT
  Age: 69 Year
  Sex: Male
  Weight: 74 kg

DRUGS (26)
  1. BLINDED ALISKIREN [Suspect]
     Indication: CARDIAC FAILURE
     Dosage: CODE NOT BROKEN
     Route: 048
     Dates: start: 20100928, end: 20130729
  2. BLINDED ENALAPRIL [Suspect]
     Indication: CARDIAC FAILURE
     Dosage: CODE NOT BROKEN
     Route: 048
     Dates: start: 20100928, end: 20130729
  3. BLINDED NO TREATMENT RECEIVED [Suspect]
     Indication: CARDIAC FAILURE
     Dosage: CODE NOT BROKEN
     Route: 048
     Dates: start: 20100928, end: 20130729
  4. COMPARATOR ENALAPRIL [Suspect]
     Indication: CARDIAC FAILURE
     Dosage: 10 MG, UNK
     Route: 048
     Dates: start: 20100728
  5. COMPARATOR ENALAPRIL [Suspect]
     Dosage: 20 MG, UNK
     Route: 048
     Dates: start: 20100817
  6. ALISKIREN [Suspect]
     Indication: CARDIAC FAILURE
     Dosage: UNK
     Route: 048
     Dates: start: 20100908
  7. BAYASPIRIN [Concomitant]
     Indication: MYOCARDIAL INFARCTION
     Dosage: 100 MG, UNK
     Route: 048
     Dates: start: 20081004
  8. PLAVIX [Concomitant]
     Indication: MYOCARDIAL INFARCTION
     Dosage: 75 MG, UNK
     Route: 048
     Dates: start: 20081004
  9. TAKEPRON [Concomitant]
     Indication: GASTRITIS PROPHYLAXIS
     Dosage: 15 MG, UNK
     Route: 048
     Dates: start: 20081004
  10. BETAHISTINE MESILATE [Concomitant]
     Indication: DIZZINESS
     Dosage: 18 MG, UNK
     Route: 048
     Dates: start: 20111108
  11. CRESTOR [Concomitant]
     Indication: HYPERLIPIDAEMIA
     Dosage: 2.5 MG, UNK
     Route: 048
     Dates: start: 20081004
  12. LASIX [Concomitant]
     Indication: RENAL FAILURE CHRONIC
     Dosage: 80 MG, DAILY
     Dates: start: 20090612
  13. LASIX [Concomitant]
     Indication: CARDIAC FAILURE CHRONIC
     Dosage: 120 MG, DAILY
     Route: 048
     Dates: start: 20090612, end: 20111111
  14. LASIX [Concomitant]
     Dosage: 20 MG, DAILY
     Dates: start: 20130602
  15. JANUVIA [Concomitant]
     Indication: DIABETES MELLITUS
     Dosage: 50 MG, UNK
     Route: 048
     Dates: start: 20130227
  16. SORENTMIN MERCK HOEI [Concomitant]
     Indication: INSOMNIA
     Dosage: 0.25 MG, UNK
     Route: 048
     Dates: start: 20130502
  17. EURAX H [Concomitant]
     Indication: ECZEMA
     Dosage: UNK
     Route: 061
     Dates: start: 20121225
  18. EPLERENONE [Concomitant]
     Indication: RENAL FAILURE CHRONIC
     Dosage: 50 MG, UNK
     Route: 048
     Dates: start: 20090612
  19. MAGMITT [Concomitant]
     Indication: CONSTIPATION
     Dosage: 1500 MG, UNK
     Route: 048
     Dates: start: 20081004
  20. ARTIST [Concomitant]
     Indication: RENAL FAILURE CHRONIC
     Dosage: 2.5 MG, UNK
     Route: 048
     Dates: start: 20081219
  21. ALLOPURINOL [Concomitant]
     Indication: HYPERURICAEMIA
     Dosage: 100 MG, UNK
     Route: 048
     Dates: start: 20090520
  22. POSTERISAN [Concomitant]
     Indication: HAEMORRHOIDS
     Dosage: UNK
     Dates: start: 20081114
  23. NOVOLIN N [Concomitant]
     Indication: DIABETES MELLITUS
     Dosage: UNK
     Route: 058
     Dates: start: 20090821
  24. NOVORAPID [Concomitant]
     Indication: DIABETES MELLITUS
     Dosage: UNK
     Route: 058
     Dates: start: 20090915
  25. PIMOBENDAN [Concomitant]
     Indication: CARDIAC FAILURE CHRONIC
     Dosage: 2.5 MG, UNK
     Route: 048
     Dates: start: 20111025
  26. CEPHADOL [Concomitant]
     Indication: DIZZINESS
     Dosage: 75 MG, UNK
     Route: 048
     Dates: start: 20111108

REACTIONS (2)
  - Cardiac failure acute [Recovering/Resolving]
  - Dyspnoea [Recovering/Resolving]
